FAERS Safety Report 4479800-8 (Version None)
Quarter: 2004Q3

REPORT INFORMATION
  Report Type: 
  Country: None (occurrence: None)
  Receive Date: 20040923
  Receipt Date: 20040526
  Transmission Date: 20050211
  Serious: No
  Sender: FDA-Public Use
  Company Number: USA040363181

PATIENT
  Age: 61 Year
  Sex: Female
  Weight: 75 kg

DRUGS (3)
  1. FORTEO [Suspect]
     Indication: OSTEOPOROSIS
     Dosage: 20 UG 1 DAY
     Dates: start: 20040305
  2. RALOXIFENE HCL [Concomitant]
     Dosage: 60 MG 1 DAY
     Dates: start: 19980101
  3. SYNTHROID [Concomitant]

REACTIONS (3)
  - CHEST PAIN [None]
  - JAW DISORDER [None]
  - MUSCLE DISORDER [None]
